FAERS Safety Report 23273027 (Version 1)
Quarter: 2023Q4

REPORT INFORMATION
  Report Type: Spontaneous
  Country: US (occurrence: US)
  Receive Date: 20231207
  Receipt Date: 20231207
  Transmission Date: 20240110
  Serious: No
  Sender: FDA-Public Use
  Company Number: US-SA-SAC20231204000742

PATIENT
  Age: 8 Year
  Sex: Male
  Weight: 54.43 kg

DRUGS (2)
  1. DUPIXENT [Suspect]
     Active Substance: DUPILUMAB
     Indication: Dermatitis atopic
     Dosage: 200 MG, QOW
     Route: 058
     Dates: start: 2023
  2. BENADRYL [Concomitant]
     Active Substance: DIPHENHYDRAMINE HYDROCHLORIDE
     Dosage: 20ML (50MG) EVERY 6-8 HOUR AS NEEDED

REACTIONS (4)
  - Rash [Unknown]
  - Hypersensitivity [Unknown]
  - Lip erythema [Unknown]
  - Lip swelling [Unknown]

NARRATIVE: CASE EVENT DATE: 20230101
